FAERS Safety Report 7921155-8 (Version None)
Quarter: 2011Q4

REPORT INFORMATION
  Report Type: 
  Country: None (occurrence: None)
  Receive Date: 20111117
  Receipt Date: 20111101
  Transmission Date: 20120403
  Serious: Yes (Other)
  Sender: FDA-Public Use
  Company Number: US-US-EMD SERONO, INC.-7093125

PATIENT
  Age: 11 Year
  Sex: Male

DRUGS (3)
  1. SOMATROPIN [Suspect]
     Dosage: 0.45 TO 0.5 MG/KG/WEEK
  2. SOMATROPIN [Suspect]
     Dosage: 0.48 TO 0.5 MG/KG/WEEK
  3. SOMATROPIN [Suspect]
     Indication: SMALL FOR DATES BABY

REACTIONS (4)
  - PITUITARY CYST [None]
  - PITUITARY-DEPENDENT CUSHING'S SYNDROME [None]
  - UPPER LIMB FRACTURE [None]
  - DRUG INEFFECTIVE [None]
